FAERS Safety Report 8097888-2 (Version None)
Quarter: 2012Q1

REPORT INFORMATION
  Report Type: 
  Country: None (occurrence: None)
  Receive Date: 20120128
  Receipt Date: 20110720
  Transmission Date: 20120608
  Serious: No
  Sender: FDA-Public Use
  Company Number: US-ABBOTT-11P-163-0840636-00

PATIENT
  Sex: Female
  Weight: 62.198 kg

DRUGS (4)
  1. PLAQUENIL [Concomitant]
     Indication: RHEUMATOID ARTHRITIS
  2. HUMIRA [Suspect]
     Indication: RHEUMATOID ARTHRITIS
     Route: 058
     Dates: start: 20110101
  3. LYRICA [Concomitant]
     Indication: RHEUMATOID ARTHRITIS
     Route: 048
  4. BLOOD PRESSURE MEDICATION [Concomitant]
     Indication: CARDIAC MURMUR

REACTIONS (3)
  - URTICARIA [None]
  - PRURITUS [None]
  - BLISTER [None]
